FAERS Safety Report 16250076 (Version 1)
Quarter: 2019Q2

REPORT INFORMATION
  Report Type: Spontaneous
  Country: US (occurrence: US)
  Receive Date: 20190325
  Receipt Date: 20190325
  Transmission Date: 20190711
  Serious: No
  Sender: FDA-Public Use
  Company Number: None

PATIENT
  Age: 83 Year
  Sex: Female

DRUGS (4)
  1. ONDANSETRON TABS TABLET 8MG [Suspect]
     Active Substance: ONDANSETRON
     Route: 048
     Dates: start: 201903
  2. FUROSEMIDE. [Concomitant]
     Active Substance: FUROSEMIDE
  3. NOVOLIN [Concomitant]
     Active Substance: INSULIN HUMAN
  4. XELODA [Concomitant]
     Active Substance: CAPECITABINE

REACTIONS (2)
  - Nausea [None]
  - Vomiting [None]

NARRATIVE: CASE EVENT DATE: 20190325
